FAERS Safety Report 7314516-1 (Version None)
Quarter: 2011Q1

REPORT INFORMATION
  Report Type: 
  Country: None (occurrence: None)
  Receive Date: 20110225
  Receipt Date: 20101022
  Transmission Date: 20110831
  Serious: No
  Sender: FDA-Public Use
  Company Number: US-MYLANLABS-2010S1017304

PATIENT
  Age: 27 Year
  Sex: Female
  Weight: 63.5 kg

DRUGS (3)
  1. AMNESTEEM [Suspect]
     Indication: ACNE
     Route: 048
     Dates: start: 20100503, end: 20100913
  2. LOESTRIN 1.5/30 [Concomitant]
     Indication: CONTRACEPTION
     Route: 048
  3. MOTRIN [Concomitant]
     Indication: ARTHRALGIA
     Route: 048

REACTIONS (1)
  - ABDOMINAL PAIN [None]
